FAERS Safety Report 4674183-2 (Version None)
Quarter: 2005Q2

REPORT INFORMATION
  Report Type: 
  Country: None (occurrence: None)
  Receive Date: 20050524
  Receipt Date: 20050509
  Transmission Date: 20051028
  Serious: Yes (Hospitalization, Other)
  Sender: FDA-Public Use
  Company Number: WAES 0403USA01257

PATIENT
  Age: 76 Year
  Sex: Male

DRUGS (12)
  1. INJ ERTAPENEM SODIUM UNK [Suspect]
     Indication: PROPHYLAXIS
     Dosage: 1 GM/1X/IV
     Route: 042
     Dates: start: 20040311, end: 20040311
  2. THERAPY UNSPECIFIED [Concomitant]
  3. ALPRAZOLAM [Concomitant]
  4. ATENOLOL [Concomitant]
  5. CELECOXIB [Concomitant]
  6. CITALOPRAM [Concomitant]
  7. CYCLOBENZAPRINE HYDROCHLORIDE [Concomitant]
  8. EPHEDRINE SUL CAP [Concomitant]
  9. FERROUS GLUCONATE [Concomitant]
  10. FOSINOPRIL SODIUM [Concomitant]
  11. HEPARIN [Concomitant]
  12. TEMAZEPAM [Concomitant]

REACTIONS (3)
  - BLOOD PRESSURE DECREASED [None]
  - CARDIAC DISORDER [None]
  - SINUS BRADYCARDIA [None]
